FAERS Safety Report 11157477 (Version 2)
Quarter: 2015Q2

REPORT INFORMATION
  Report Type: Spontaneous
  Country: BE (occurrence: BE)
  Receive Date: 20150603
  Receipt Date: 20150612
  Transmission Date: 20150821
  Serious: Yes (Other)
  Sender: FDA-Public Use
  Company Number: PHHY2015BE066320

PATIENT
  Sex: Male

DRUGS (3)
  1. LEPONEX [Suspect]
     Active Substance: CLOZAPINE
     Indication: PARKINSON^S DISEASE PSYCHOSIS
     Dosage: 25 MG, BID (25 MG AT 5PM AND 25MG AT 8 PM)
     Route: 065
     Dates: start: 20150529
  2. LEPONEX [Suspect]
     Active Substance: CLOZAPINE
     Dosage: 0.5 DF, UNK, IN THE MORNING
     Route: 065
  3. STALEVO [Concomitant]
     Active Substance: CARBIDOPA\ENTACAPONE\LEVODOPA
     Indication: PRODUCT USED FOR UNKNOWN INDICATION
     Route: 065

REACTIONS (3)
  - Balance disorder [Unknown]
  - Hallucination [Unknown]
  - Pollakiuria [Unknown]

NARRATIVE: CASE EVENT DATE: 20150529
